FAERS Safety Report 6880600-X (Version None)
Quarter: 2010Q3

REPORT INFORMATION
  Report Type: 
  Country: None (occurrence: None)
  Receive Date: 20100727
  Receipt Date: 20091112
  Transmission Date: 20110219
  Serious: No
  Sender: FDA-Public Use
  Company Number: A0816770A

PATIENT
  Age: 36 Year
  Sex: Female

DRUGS (3)
  1. ZANTAC [Suspect]
     Dosage: 150MG TWICE PER DAY
     Route: 048
     Dates: start: 20091101
  2. ZOLOFT [Concomitant]
  3. TRAZODONE [Concomitant]

REACTIONS (4)
  - DROOLING [None]
  - DRUG INEFFECTIVE [None]
  - OVERDOSE [None]
  - PARAESTHESIA [None]
